FAERS Safety Report 8479461-7 (Version None)
Quarter: 2012Q2

REPORT INFORMATION
  Report Type: 
  Country: None (occurrence: None)
  Receive Date: 20120629
  Receipt Date: 20120614
  Transmission Date: 20120825
  Serious: Yes (Hospitalization)
  Sender: FDA-Public Use
  Company Number: US-ACTELION-A-NJ2012-64328

PATIENT

DRUGS (7)
  1. COUMADIN [Concomitant]
  2. METOLAZONE [Concomitant]
  3. EPOPROSTENOL SODIUM [Suspect]
     Indication: PULMONARY ARTERIAL HYPERTENSION
     Dosage: 6 NG/KG, PER MIN
     Route: 041
     Dates: start: 20120315, end: 20120613
  4. SILDENAFIL [Concomitant]
  5. LETAIRIS [Concomitant]
  6. TORSEMIDE [Concomitant]
  7. DIGOXIN [Concomitant]

REACTIONS (11)
  - PAIN [None]
  - NAUSEA [None]
  - WEIGHT INCREASED [None]
  - FLUID RETENTION [None]
  - GENERAL PHYSICAL HEALTH DETERIORATION [None]
  - DYSPNOEA [None]
  - INFLUENZA LIKE ILLNESS [None]
  - HEADACHE [None]
  - MALAISE [None]
  - ABDOMINAL PAIN [None]
  - ABDOMINAL DISCOMFORT [None]
